FAERS Safety Report 5743369-8 (Version None)
Quarter: 2008Q2

REPORT INFORMATION
  Report Type: 
  Country: None (occurrence: None)
  Receive Date: 20080519
  Receipt Date: 20080519
  Transmission Date: 20081010
  Serious: Yes (Other)
  Sender: FDA-Public Use
  Company Number: None

PATIENT
  Sex: Male
  Weight: 114.3065 kg

DRUGS (2)
  1. DIGITEK 0.25 MG.XS 2 STERICYCLE [Suspect]
     Indication: HEART RATE IRREGULAR
     Dosage: 0.25 XS 2, 1 TAB DAILY PO
     Route: 048
     Dates: start: 20070101, end: 20071230
  2. DIGITEK 0.25 MG.XS 2 STERICYCLE [Suspect]
     Indication: HEART RATE IRREGULAR
     Dosage: 0.25 XS 2, 1 TAB DAILY PO
     Route: 048
     Dates: start: 20080331, end: 20080430

REACTIONS (15)
  - ABDOMINAL PAIN UPPER [None]
  - ANGINA PECTORIS [None]
  - ASTHENIA [None]
  - CARDIAC DISORDER [None]
  - DIARRHOEA [None]
  - DYSPNOEA [None]
  - FEELING ABNORMAL [None]
  - HAEMOPTYSIS [None]
  - LUNG DISORDER [None]
  - MALAISE [None]
  - MYOCARDIAL OEDEMA [None]
  - NAUSEA [None]
  - PRODUCTIVE COUGH [None]
  - SPEECH DISORDER [None]
  - VOMITING [None]
